FAERS Safety Report 7984973-6 (Version None)
Quarter: 2011Q4

REPORT INFORMATION
  Report Type: 
  Country: None (occurrence: None)
  Receive Date: 20111213
  Receipt Date: 20111207
  Transmission Date: 20120403
  Serious: Yes (Life-Threatening)
  Sender: FDA-Public Use
  Company Number: 2011SP056984

PATIENT
  Age: 47 Year
  Sex: Female

DRUGS (2)
  1. ASPIRIN [Concomitant]
  2. NUVARING [Suspect]
     Indication: PRODUCT USED FOR UNKNOWN INDICATION
     Dosage: AM;IU
     Dates: start: 20090205, end: 20110929

REACTIONS (2)
  - PULMONARY EMBOLISM [None]
  - STRESS ECHOCARDIOGRAM ABNORMAL [None]
